FAERS Safety Report 12623271 (Version 7)
Quarter: 2020Q1

REPORT INFORMATION
  Report Type: Spontaneous
  Country: US (occurrence: US)
  Receive Date: 20160804
  Receipt Date: 20200306
  Transmission Date: 20200409
  Serious: Yes (Life-Threatening, Hospitalization, Other)
  Sender: FDA-Public Use
  Company Number: US-UNITED THERAPEUTICS-UNT-2016-012087

PATIENT
  Age: 57 Year
  Sex: Female
  Weight: 77.1 kg

DRUGS (54)
  1. REMODULIN [Suspect]
     Active Substance: TREPROSTINIL
     Dosage: 0.0245 ?G/KG, CONTINUING
     Route: 041
     Dates: start: 20160718
  2. SENSIPAR [Concomitant]
     Active Substance: CINACALCET HYDROCHLORIDE
     Indication: DIALYSIS
     Dosage: 180 MG, TOTAL DAILY DOSE
     Route: 065
     Dates: start: 2013
  3. METHOXY POLYETHYLENE GLYCOL-EPOETIN BETA. [Concomitant]
     Active Substance: METHOXY POLYETHYLENE GLYCOL-EPOETIN BETA
     Indication: CHRONIC KIDNEY DISEASE
     Dosage: UNK, Q2WK (50 ?G, TOTAL DAILY DOSE)
     Route: 065
     Dates: start: 20151007
  4. RENVELA [Concomitant]
     Active Substance: SEVELAMER CARBONATE
     Indication: DIALYSIS
     Dosage: 1600 MG, TOTAL DAILY DOSE
     Route: 065
     Dates: start: 20150819
  5. VERSED [Concomitant]
     Active Substance: MIDAZOLAM HYDROCHLORIDE
     Indication: SEDATION
     Dosage: 2 MG, TOTAL DAILY DOSE
     Route: 065
     Dates: start: 20160730, end: 20160730
  6. PEPCID [Concomitant]
     Active Substance: FAMOTIDINE
     Indication: PROPHYLAXIS
     Dosage: 20 MG, TOTAL DAILY DOSE
     Route: 065
     Dates: start: 20151005, end: 20160626
  7. ALBUMIN [Concomitant]
     Active Substance: ALBUMIN HUMAN
     Indication: PROPHYLAXIS
     Dosage: 25 G, TOTAL DAILY DOSE
     Route: 065
     Dates: start: 20160804, end: 20160805
  8. MUPIROCIN. [Concomitant]
     Active Substance: MUPIROCIN
     Indication: PROPHYLAXIS
     Dosage: UNK (2 APPLICATION, TOTAL DAILY DOSE)
     Route: 065
     Dates: start: 20160803, end: 20160804
  9. VITAMIN C [Concomitant]
     Active Substance: ASCORBIC ACID
     Indication: SUPPLEMENTATION THERAPY
     Dosage: 1000 MG, TOTAL DAILY DOSE
     Route: 065
     Dates: start: 20160803, end: 20160805
  10. PERIDEX [Concomitant]
     Active Substance: CHLORHEXIDINE GLUCONATE
     Indication: AORTIC VALVE REPLACEMENT
     Dosage: 15 ML ORAL RINSE
     Route: 048
     Dates: start: 20160802, end: 20160802
  11. VANCOMYCIN [Concomitant]
     Active Substance: VANCOMYCIN
     Dosage: 250 MG
     Route: 065
     Dates: start: 20160728, end: 20160728
  12. ADEMPAS [Suspect]
     Active Substance: RIOCIGUAT
     Dosage: UNK, TID (4.5 MG, TOTAL DAILY DOSE)
     Route: 048
     Dates: start: 20160707, end: 20160828
  13. XARELTO [Concomitant]
     Active Substance: RIVAROXABAN
     Indication: CORONARY ARTERY DISEASE
     Dosage: 20 MG, TOTAL DAILY DOSE
     Route: 065
     Dates: start: 20151201, end: 20160627
  14. ALBUMIN [Concomitant]
     Active Substance: ALBUMIN HUMAN
     Indication: PROPHYLAXIS
     Dosage: UNK, PRN  (EVERY 5 MIN) (12.5 G, TOTAL DAILY DOSE)
     Route: 065
     Dates: start: 20160801, end: 20160801
  15. CUBICIN [Concomitant]
     Active Substance: DAPTOMYCIN
     Dosage: UNK (EVERY 48 HOUR) (600 MG, TOTAL DAILY DOSE)
     Route: 065
     Dates: start: 20160803, end: 20160807
  16. PRECEDEX [Concomitant]
     Active Substance: DEXMEDETOMIDINE HYDROCHLORIDE
     Indication: SEDATION
     Dosage: VARIABLE RATE (0.2 ?G/KG/HR TO 0.6 ?G/KG/HR)
     Route: 065
     Dates: start: 20160803, end: 20160808
  17. ADRENALIN [Concomitant]
     Active Substance: EPINEPHRINE
     Indication: PROPHYLAXIS
     Dosage: 655 ?G, TOTAL DAILY DOSE
     Route: 065
     Dates: start: 20160803, end: 20160803
  18. SUBLIMAZE [Concomitant]
     Active Substance: FENTANYL CITRATE
     Indication: SEDATION
     Dosage: 50 ?G, TOTAL DAILY DOSE
     Route: 065
     Dates: start: 20160730, end: 20160730
  19. DILAUDID [Concomitant]
     Active Substance: HYDROMORPHONE HYDROCHLORIDE
     Indication: PAIN
     Dosage: 0.2 MG, TOTAL DAILY DOSE
     Route: 065
     Dates: start: 20160805, end: 20160805
  20. VITAMIN K [Concomitant]
     Active Substance: PHYTONADIONE
     Indication: PROPHYLAXIS
     Dosage: 10 MG, TOTAL DAILY DOSE
     Route: 065
     Dates: start: 20160801, end: 20160801
  21. REMODULIN [Suspect]
     Active Substance: TREPROSTINIL
     Indication: PULMONARY ARTERIAL HYPERTENSION
     Dosage: 0.022 ?G/KG, CONTINUING
     Route: 041
     Dates: start: 20150930
  22. ADEMPAS [Suspect]
     Active Substance: RIOCIGUAT
     Indication: PULMONARY ARTERIAL HYPERTENSION
     Dosage: UNK
     Route: 048
     Dates: start: 20160118
  23. COUMADIN [Concomitant]
     Active Substance: WARFARIN SODIUM
     Indication: MYOCARDIAL INFARCTION
     Dosage: 5 MG, TOTAL DAILY DOSE
     Route: 065
     Dates: start: 20151005
  24. SURFAK [Concomitant]
     Indication: CONSTIPATION PROPHYLAXIS
     Dosage: UNK, QOD (240 MG, TOTAL DAILY DOSE)
     Route: 065
     Dates: start: 20150922, end: 20160626
  25. HECTOROL [Concomitant]
     Active Substance: DOXERCALCIFEROL
     Indication: DIALYSIS
     Dosage: UNK (MON, WED AND FRI) (3 ?G, TOTAL DAILY DOSE)
     Route: 065
     Dates: start: 20151007, end: 20160727
  26. METOPROLOL. [Concomitant]
     Active Substance: METOPROLOL
     Indication: CORONARY ARTERY DISEASE
     Dosage: 50 MG, TOTAL DAILY DOSE
     Route: 065
     Dates: start: 20150809, end: 20160626
  27. VANCOMYCIN [Concomitant]
     Active Substance: VANCOMYCIN
     Dosage: 1250 MG
     Route: 065
     Dates: start: 20160727, end: 20160727
  28. ULTRAM [Concomitant]
     Active Substance: TRAMADOL HYDROCHLORIDE
     Indication: PAIN PROPHYLAXIS
     Dosage: UNK, PRN (Q6H) (50 MG, TOTAL DAILY DOSE)
     Route: 065
     Dates: start: 20160215
  29. AMBIEN [Concomitant]
     Active Substance: ZOLPIDEM TARTRATE
     Indication: INSOMNIA
     Dosage: 5 MG, TOTAL DAILY DOSE
     Route: 065
  30. ATORVASTATIN [Concomitant]
     Active Substance: ATORVASTATIN
     Indication: MYOCARDIAL ISCHAEMIA
     Dosage: 40 MG, TOTAL DAILY DOSE
     Route: 065
     Dates: start: 20160728, end: 20160731
  31. SUBLIMAZE [Concomitant]
     Active Substance: FENTANYL CITRATE
     Indication: PAIN
     Dosage: 1000 ?G, TOTAL DAILY DOSE
     Route: 065
     Dates: start: 20160803, end: 20160806
  32. REMODULIN [Suspect]
     Active Substance: TREPROSTINIL
     Dosage: UNK
     Route: 041
     Dates: start: 20150922
  33. REMODULIN [Suspect]
     Active Substance: TREPROSTINIL
     Dosage: 0.024 ?G/KG, CONTINUING
     Route: 041
     Dates: start: 20160803, end: 20160927
  34. ONDANSETRON [Concomitant]
     Active Substance: ONDANSETRON
     Indication: PROPHYLAXIS OF NAUSEA AND VOMITING
     Dosage: UNK, PRN (Q8H) (8 MG, TOTAL DAILY DOSE)
     Route: 065
     Dates: start: 20160723
  35. ATORVASTATIN [Concomitant]
     Active Substance: ATORVASTATIN
     Dosage: 10 MG, TOTAL DAILY DOSE
     Route: 065
     Dates: start: 20160801, end: 20160802
  36. PROCRIT [Concomitant]
     Active Substance: ERYTHROPOIETIN
     Indication: CHRONIC KIDNEY DISEASE
     Dosage: UNK, 3 TIMES/WK (10000 UNITS, TOTAL DAILY DOSE)
     Route: 065
     Dates: start: 20160729, end: 20160808
  37. INSULIN INFUSION [Concomitant]
     Indication: PROPHYLAXIS
     Dosage: 8.5 ML, TOTAL DAILY DOSE
     Route: 065
     Dates: start: 20160803, end: 20160803
  38. VENOFER [Concomitant]
     Active Substance: IRON SUCROSE
     Indication: END STAGE RENAL DISEASE
     Dosage: 200 MG, TOTAL DAILY DOSE
     Route: 065
     Dates: start: 20160801, end: 20160801
  39. KETOROLAC [Concomitant]
     Active Substance: KETOROLAC TROMETHAMINE
     Indication: PAIN PROPHYLAXIS
     Dosage: 15 MG, TOTAL DAILY DOSE
     Route: 065
     Dates: start: 20160805, end: 20160805
  40. BACID [Concomitant]
     Active Substance: LACTOBACILLUS ACIDOPHILUS
     Indication: PROPHYLAXIS
     Dosage: UNK (2 DF, TOTAL DAILY DOSE)
     Route: 065
     Dates: start: 20160802, end: 20160802
  41. ROZEREM [Concomitant]
     Active Substance: RAMELTEON
     Indication: INSOMNIA
     Dosage: UNK, PRN (8 MG, TOTAL DAILY DOSE)
     Route: 065
     Dates: start: 20160728, end: 20160815
  42. RIFADIN [Concomitant]
     Active Substance: RIFAMPIN
     Indication: ENDOCARDITIS
     Dosage: 600 MG, TOTAL DAILY DOSE
     Route: 065
     Dates: start: 20160802, end: 20160822
  43. VANCOMYCIN [Concomitant]
     Active Substance: VANCOMYCIN
     Indication: SEPSIS
     Dosage: 125 MG
     Route: 065
     Dates: start: 20160727, end: 20160727
  44. VANCOMYCIN [Concomitant]
     Active Substance: VANCOMYCIN
     Dosage: 750 MG
     Route: 065
     Dates: start: 20160728, end: 20160729
  45. PRIMACOR [Concomitant]
     Active Substance: MILRINONE LACTATE
     Indication: CARDIOGENIC SHOCK
     Dosage: 20 MG, TOTAL DAILY DOSE
     Route: 065
     Dates: start: 20160803, end: 20160803
  46. PITRESSIN [Concomitant]
     Active Substance: VASOPRESSIN
     Indication: CARDIOGENIC SHOCK
     Dosage: UNK VARIABLE RATE (0.017 UNITS/MIN TO 0.083 UNITS.MIN)
     Route: 065
     Dates: start: 20160803, end: 20160814
  47. TYLENOL [Concomitant]
     Active Substance: ACETAMINOPHEN
     Indication: PYREXIA
     Dosage: 500 MG, ASNECESSARY (EVERY 6 HOURS)
     Route: 065
     Dates: start: 20160728, end: 20160728
  48. ASPIRIN. [Concomitant]
     Active Substance: ASPIRIN
     Indication: MYOCARDIAL ISCHAEMIA
     Dosage: 324 MG, TOTAL DAILY DOSE
     Route: 065
     Dates: start: 20160728, end: 20160802
  49. CUBICIN [Concomitant]
     Active Substance: DAPTOMYCIN
     Indication: ENDOCARDITIS
     Dosage: 480 MG, TOTAL DAILY DOSE
     Route: 065
     Dates: start: 20160801, end: 20160801
  50. DEXTROSE GEL [Concomitant]
     Indication: HYPOGLYCAEMIA
     Dosage: UNK, PRN (15 G, TOTAL DAILY DOSE)
     Route: 065
     Dates: start: 20160728, end: 20160728
  51. DEXTROSE INFUSION [Concomitant]
     Active Substance: DEXTROSE
     Indication: CATHETER MANAGEMENT
     Dosage: 240 ML, TOTAL DAILY DOSE
     Route: 065
     Dates: start: 20160803, end: 20160813
  52. SENOKOT [Concomitant]
     Active Substance: SENNOSIDES
     Indication: CONSTIPATION PROPHYLAXIS
     Dosage: UNK (2 DF, TOTAL DAILY DOSE)
     Route: 065
     Dates: start: 20160805, end: 20160805
  53. BACID [Concomitant]
     Active Substance: LACTOBACILLUS ACIDOPHILUS
     Dosage: UNK (4 DF, TOTAL DAILY DOSE)
     Route: 065
     Dates: start: 20160804, end: 20160828
  54. MAGNESIUM SULFATE. [Concomitant]
     Active Substance: MAGNESIUM SULFATE
     Indication: ELECTROLYTE SUBSTITUTION THERAPY
     Dosage: 2 G, TOTAL DAILY DOSE
     Route: 065
     Dates: start: 20160803, end: 20160808

REACTIONS (8)
  - Heart valve replacement [Unknown]
  - Sepsis [Recovered/Resolved]
  - Acute respiratory failure [Recovered/Resolved with Sequelae]
  - Weight decreased [Unknown]
  - Cardiogenic shock [Recovered/Resolved]
  - Anaemia postoperative [Recovered/Resolved]
  - Pyrexia [Unknown]
  - Asthenia [Unknown]

NARRATIVE: CASE EVENT DATE: 2016
